FAERS Safety Report 5471320-7 (Version None)
Quarter: 2007Q3

REPORT INFORMATION
  Report Type: 
  Country: None (occurrence: None)
  Receive Date: 20070928
  Receipt Date: 20060801
  Transmission Date: 20080115
  Serious: Yes (Other)
  Sender: FDA-Public Use
  Company Number: US-BRISTOL-MYERS SQUIBB COMPANY-13350681

PATIENT
  Age: 66 Year
  Sex: Male
  Weight: 136 kg

DRUGS (8)
  1. DEFINITY [Suspect]
     Indication: LEFT VENTRICULAR FAILURE
     Dosage: DOSE VALUE:  10 ML OF VIAL CONTENTS IN 10 CC SALINE.
     Route: 040
     Dates: start: 20060407, end: 20060407
  2. TOPROL-XL [Concomitant]
  3. INSULIN [Concomitant]
     Dosage: DOSE VALUE:  40 U (70/30)
  4. METFORMIN [Concomitant]
     Dosage: DOSE VALUE:  1 GM AM/500 MG PM
  5. ENALAPRIL MALEATE [Concomitant]
  6. ASPIRIN [Concomitant]
  7. NORVASC [Concomitant]
  8. ZOCOR [Concomitant]

REACTIONS (3)
  - HYPERHIDROSIS [None]
  - HYPOTENSION [None]
  - URTICARIA [None]
